FAERS Safety Report 17277012 (Version 1)
Quarter: 2020Q1

REPORT INFORMATION
  Report Type: Spontaneous
  Country: US (occurrence: US)
  Receive Date: 20200116
  Receipt Date: 20200116
  Transmission Date: 20200409
  Serious: No
  Sender: FDA-Public Use
  Company Number: US-PFIZER INC-2019438763

PATIENT
  Age: 71 Year
  Sex: Male
  Weight: 68.4 kg

DRUGS (1)
  1. SUTENT [Suspect]
     Active Substance: SUNITINIB MALATE
     Indication: THYROID CANCER METASTATIC
     Dosage: 50 MG, CYCLIC(50MG PRESCRIBED BY MOUTH 1 PER DAY X 28 DAYS THEN 2 WEEKS OFF)
     Route: 048
     Dates: start: 20191002

REACTIONS (4)
  - Wrong dose [Recovered/Resolved]
  - Off label use [Unknown]
  - Product use in unapproved indication [Unknown]
  - Fatigue [Unknown]

NARRATIVE: CASE EVENT DATE: 20191002
